FAERS Safety Report 16324430 (Version 2)
Quarter: 2019Q3

REPORT INFORMATION
  Report Type: Spontaneous
  Country: US (occurrence: US)
  Receive Date: 20190517
  Receipt Date: 20190726
  Transmission Date: 20191004
  Serious: Yes (Hospitalization)
  Sender: FDA-Public Use
  Company Number: US-VERTEX PHARMACEUTICALS-2019-004360

PATIENT
  Sex: Male

DRUGS (4)
  1. SYMDEKO [Suspect]
     Active Substance: IVACAFTOR\TEZACAFTOR
     Dosage: 1 YELLOW TAB TWICE DAILY, ON SUN AND THURS, NO BLUE TAB
     Route: 048
     Dates: start: 20180621
  2. PULMOZYME [Suspect]
     Active Substance: DORNASE ALFA
     Indication: CYSTIC FIBROSIS
     Dosage: 2.5 MILLILITER, QD
     Route: 055
     Dates: start: 20180621
  3. SYMDEKO [Suspect]
     Active Substance: IVACAFTOR\TEZACAFTOR
     Indication: CYSTIC FIBROSIS
     Dosage: 100 MG TEZACAFTOR/150 MG IVACAFTOR AM; 150 MG IVACAFTOR PM
     Route: 048
     Dates: start: 20180414
  4. CAYSTON [Concomitant]
     Active Substance: AZTREONAM

REACTIONS (2)
  - Acute respiratory failure [Unknown]
  - Lung transplant [Unknown]

NARRATIVE: CASE EVENT DATE: 2019
